FAERS Safety Report 26121598 (Version 1)
Quarter: 2025Q4

REPORT INFORMATION
  Report Type: Spontaneous
  Country: US (occurrence: None)
  Receive Date: 20251203
  Receipt Date: 20251203
  Transmission Date: 20260117
  Serious: Yes (Other)
  Sender: FDA-CTU
  Company Number: None

PATIENT
  Sex: Male
  Weight: 88.45 kg

DRUGS (17)
  1. CORTICOTROPIN [Suspect]
     Active Substance: CORTICOTROPIN
     Indication: Gout
     Dosage: OTHER FREQUENCY : 3 DAYS CONSECUTIVE;?
     Route: 058
  2. Allopurinol Oral Tablet 300 MG [Concomitant]
  3. Carvedilol Oral Tablet 12.5 MG [Concomitant]
  4. Aspirin 81 Oral Tablet Delayed Rele [Concomitant]
  5. Lisinopril Oral Tablet 40 MG [Concomitant]
  6. Fenofibrate Oral Tablet 160 MG [Concomitant]
  7. Simvastatin Oral Tablet 20 MG [Concomitant]
  8. Synthroid Oral Tablet 88 MCG [Concomitant]
  9. Vitamin D3 Oral Capsule 25 MCG [Concomitant]
  10. Gabapentin Oral Capsule 300 MG [Concomitant]
  11. traMADol HCl Oral Tablet 50 MG [Concomitant]
  12. predniSONE Oral Tablet 5 MG [Concomitant]
  13. Colchicine Oral Tablet 0.6MG [Concomitant]
  14. QC Vitamin B12 Oral Tablet 500 MCG [Concomitant]
  15. Aqueous Vitamin D Oral Liquid 10 MC [Concomitant]
  16. Magnesium Citrate Oral Capsule 100 [Concomitant]
  17. Lantus Subcutaneous Solution 100 UN [Concomitant]

REACTIONS (2)
  - Bone pain [None]
  - Limb injury [None]
